FAERS Safety Report 16524991 (Version 1)
Quarter: 2019Q3

REPORT INFORMATION
  Report Type: Spontaneous
  Country: NO (occurrence: NO)
  Receive Date: 20190702
  Receipt Date: 20190702
  Transmission Date: 20191004
  Serious: Yes (Disabling, Other)
  Sender: FDA-Public Use
  Company Number: NO-ALLERGAN-1927019US

PATIENT
  Sex: Male
  Weight: 100 kg

DRUGS (6)
  1. FISH OIL [Concomitant]
     Active Substance: FISH OIL
     Indication: PRODUCT USED FOR UNKNOWN INDICATION
     Route: 065
  2. DRIDASE [Suspect]
     Active Substance: OXYBUTYNIN CHLORIDE
     Indication: HYPERHIDROSIS
     Dosage: UNK
     Route: 048
     Dates: start: 20180101, end: 20180424
  3. OXYBUTYNIN PCH - BP [Suspect]
     Active Substance: OXYBUTYNIN
     Indication: HYPERHIDROSIS
     Dosage: 5 G, Q8HR
     Route: 062
  4. VITAMINE C [Concomitant]
     Active Substance: ASCORBIC ACID
     Indication: PRODUCT USED FOR UNKNOWN INDICATION
     Dosage: UNK
     Route: 065
  5. VITAMIN B9 [Concomitant]
     Indication: PRODUCT USED FOR UNKNOWN INDICATION
     Route: 065
  6. SUBUTEX [Concomitant]
     Active Substance: BUPRENORPHINE HYDROCHLORIDE
     Indication: PRODUCT USED FOR UNKNOWN INDICATION
     Route: 065

REACTIONS (11)
  - Dry eye [Not Recovered/Not Resolved]
  - Impulsive behaviour [Unknown]
  - Acute stress disorder [Unknown]
  - Memory impairment [Unknown]
  - Dysuria [Not Recovered/Not Resolved]
  - Feeling cold [Unknown]
  - Head discomfort [Not Recovered/Not Resolved]
  - Nausea [Not Recovered/Not Resolved]
  - Insomnia [Not Recovered/Not Resolved]
  - Visual impairment [Not Recovered/Not Resolved]
  - Dissociation [Unknown]
